FAERS Safety Report 17187645 (Version 1)
Quarter: 2019Q4

REPORT INFORMATION
  Report Type: Report from Study
  Country: None (occurrence: US)
  Receive Date: 20191220
  Receipt Date: 20191220
  Transmission Date: 20200122
  Serious: Yes (Hospitalization)
  Sender: FDA-Public Use
  Company Number: US-ABBVIE-19K-163-3176674-00

PATIENT
  Sex: Male
  Weight: 88.53 kg

DRUGS (43)
  1. TYLENOL [Concomitant]
     Active Substance: ACETAMINOPHEN
     Route: 048
     Dates: start: 20190801, end: 20190801
  2. ZOVIRAX [Concomitant]
     Active Substance: ACYCLOVIR
     Indication: PROPHYLAXIS
     Dosage: TAKE 1 TABLET BY MOUTH 2 TIMES DAILY
     Route: 048
     Dates: start: 20190813
  3. ELIQUIS [Concomitant]
     Active Substance: APIXABAN
     Indication: PRODUCT USED FOR UNKNOWN INDICATION
     Dosage: TAKE 5 MG BY MOUTH 2 TIMES DAILY
     Route: 048
  4. HUMULIN N [Concomitant]
     Active Substance: INSULIN HUMAN
     Indication: HYPERGLYCAEMIA
     Dosage: 100 UNIT/ML INJECT 30 UNITS INTO THE SKIN DAILY
     Route: 058
     Dates: start: 20191012
  5. NOVOLIN N [Concomitant]
     Active Substance: INSULIN HUMAN
     Indication: HYPERGLYCAEMIA
     Dosage: 100 UNIT/ML INJECT 30 UNITS IN TO THE SKIN DAILY
     Route: 058
  6. IMODIUM A-D [Concomitant]
     Active Substance: LOPERAMIDE HYDROCHLORIDE
     Indication: DIARRHOEA
     Dosage: TAKE 2 MG BY MOUTH 4 TIMES DAILY
     Route: 048
  7. GLYCOLAX [Concomitant]
     Active Substance: POLYETHYLENE GLYCOL 3350
     Indication: CONSTIPATION
     Dosage: TAKE 17 G BY MOUTH DAILY
     Route: 048
  8. PEPCID [Concomitant]
     Active Substance: FAMOTIDINE
     Indication: PRODUCT USED FOR UNKNOWN INDICATION
     Dosage: TAKE 20 MG BY MOUTH 2 TIMES DAILY
     Route: 048
  9. CLARITIN [Concomitant]
     Active Substance: LORATADINE
     Indication: BONE PAIN
     Dosage: TAKE 1 TABLET BY MOUTH DAILY
     Route: 048
     Dates: start: 20190814
  10. MAG-OX [Concomitant]
     Active Substance: MAGNESIUM OXIDE
     Indication: HYPOMAGNESAEMIA
     Dosage: TAKE 1 TABLET BY MOUTH DAILY
     Route: 048
     Dates: start: 20191012
  11. PAXIL [Concomitant]
     Active Substance: PAROXETINE HYDROCHLORIDE
     Indication: ANXIETY
     Dosage: EVERY MORNING
     Route: 048
  12. ZINC OXIDE. [Concomitant]
     Active Substance: ZINC OXIDE
     Indication: DIARRHOEA
  13. VENCLEXTA [Suspect]
     Active Substance: VENETOCLAX
     Indication: ACUTE MYELOID LEUKAEMIA
     Dosage: TAKE 4 TABLET BY MOUTH DAILY TAKE 100 MG BY MOUTH DAILY
     Route: 048
     Dates: start: 201902, end: 2019
  14. TYLENOL [Concomitant]
     Active Substance: ACETAMINOPHEN
     Indication: PAIN
     Dosage: TAKE 650 MG BY MOUTH EVERY 4 HR AS NEEDED FOR PAIN
     Route: 048
  15. ROCEPHIN [Concomitant]
     Active Substance: CEFTRIAXONE SODIUM
     Indication: BACTERIAL TEST POSITIVE
     Dosage: INJECT 1000 MG INTO THE VEIN EVERY 24 HR FOR 1 DAY FOR BACTERIA IN THE BLOOD
     Route: 042
     Dates: start: 20191011, end: 20191012
  16. DRISDOL [Concomitant]
     Active Substance: ERGOCALCIFEROL
     Indication: VITAMIN D DEFICIENCY
     Dosage: TAKE 1 CAPSULE BY MOUTH ONCE A WEEK ONGOING: NO
     Route: 048
     Dates: start: 20190815
  17. ZOFRAN [Concomitant]
     Active Substance: ONDANSETRON HYDROCHLORIDE
     Indication: NAUSEA
     Dosage: TAKE 4 MG BY MOUTH 3 TIMES DAILY TAKE 1 TABLET BY MOUTH BEFORE MEALS
     Route: 048
  18. ZOFRAN-ODT [Concomitant]
     Indication: NAUSEA
  19. VENCLEXTA [Suspect]
     Active Substance: VENETOCLAX
     Dosage: INCREASE 400MG/DAY WITH BREAKFAST
     Route: 048
     Dates: start: 20191101, end: 2019
  20. IMODIUM [Concomitant]
     Active Substance: LOPERAMIDE HYDROCHLORIDE
     Indication: DIARRHOEA
     Dosage: TAKE 1 CAPSULE AFTER EACH LOOSE BM. DO NOT EXCEED 16 MG DAILY
     Route: 048
     Dates: start: 20191011, end: 20191021
  21. ALAVERT ALLERGY [Concomitant]
     Active Substance: LORATADINE
     Indication: BONE PAIN
     Dosage: TAKE 1 TABLET BY MOUTH DAILY
     Route: 048
     Dates: start: 20190814
  22. SENOKOT [Concomitant]
     Active Substance: SENNOSIDES
     Indication: CONSTIPATION
     Dosage: TAKE 2 TABLETS BY MOUTH NIGHTLY AT BEDTIME
     Route: 048
     Dates: start: 20191011
  23. HEPARIN [Concomitant]
     Active Substance: HEPARIN SODIUM
     Indication: CATHETER MANAGEMENT
     Dosage: 100 UNIT/ML 3 MLS DAILY FOR MAINTAIN PATENCY OF INDWELLING VASCULAR CATHETER
     Dates: start: 20190813
  24. HUMALOG [Concomitant]
     Active Substance: INSULIN LISPRO
     Indication: TYPE 2 DIABETES MELLITUS
     Dosage: 100 UNIT/ML SYRINGE INJECT 0-16 UNITS IN TO THE SKIN 3 TIMES DAILY (WITH MEALS)
     Route: 058
     Dates: start: 20191011
  25. RENVELA [Concomitant]
     Active Substance: SEVELAMER CARBONATE
     Indication: HYPERPHOSPHATAEMIA
     Route: 048
     Dates: start: 20190822, end: 20190830
  26. AMPHOJEL [Concomitant]
     Active Substance: ALUMINUM HYDROXIDE
     Indication: PRODUCT USED FOR UNKNOWN INDICATION
     Dosage: 64 MG/ML ORAL SUSPENSION 15 ML
     Route: 048
     Dates: start: 20190822, end: 20190822
  27. VENCLEXTA [Suspect]
     Active Substance: VENETOCLAX
     Dosage: TAKE 4 TABLET BY MOUTH DAILY TAKE 100 MG BY MOUTH DAILY
     Route: 048
     Dates: start: 20191017, end: 201910
  28. VENCLEXTA [Suspect]
     Active Substance: VENETOCLAX
     Route: 048
     Dates: start: 2019
  29. MAALOX ANTACID [Concomitant]
     Active Substance: ALUMINUM HYDROXIDE\DIMETHICONE\MAGNESIUM HYDROXIDE
     Indication: DYSPEPSIA
  30. REMERON [Concomitant]
     Active Substance: MIRTAZAPINE
     Indication: APPETITE DISORDER
     Dosage: TAKE 15 MG BY MOUTH EVERY EVENING
     Route: 048
  31. DELTASONE [Concomitant]
     Active Substance: PREDNISONE
     Indication: GRAFT VERSUS HOST DISEASE
     Dosage: TAPER AS FOLLOWS : 10/24:30MG, 10/31:20MG DAILY 11/7:10 MG DAILY FOR GVHD.
     Route: 048
     Dates: start: 20191017
  32. RAPAMUNE [Concomitant]
     Active Substance: SIROLIMUS
     Indication: PROPHYLAXIS AGAINST GRAFT VERSUS HOST DISEASE
     Dosage: TAKE 1 TABLET BBY MOUTH EVERY OTHER DAY
     Route: 048
     Dates: start: 20191013
  33. DESYREL [Concomitant]
     Active Substance: TRAZODONE HYDROCHLORIDE
     Indication: SLEEP DISORDER
     Dosage: TAKE-25-MG-BY-MOUTH-NIGHTLY AT BEDTIME FOR SLEEP
     Route: 048
  34. VENCLEXTA [Suspect]
     Active Substance: VENETOCLAX
     Dosage: START 100 MG/DAY WITH BREAKFAST
     Route: 048
     Dates: start: 20191025, end: 2019
  35. ZYLOPRIM [Concomitant]
     Active Substance: ALLOPURINOL
     Indication: BLOOD URIC ACID
     Dosage: TAKE 300 MG BY MOUTH DAILY
     Route: 048
  36. MAALOX ANTACID [Concomitant]
     Active Substance: ALUMINUM HYDROXIDE\DIMETHICONE\MAGNESIUM HYDROXIDE
     Indication: DYSPEPSIA
     Dosage: 80-80-8 MG/ML SUSPENSION TAKE 15 MLS BY MOUTH EVERY 2 HR AS NEEDED
     Route: 048
     Dates: start: 20191011
  37. DIFLUCAN [Concomitant]
     Active Substance: FLUCONAZOLE
     Indication: PROPHYLAXIS
     Dosage: TAKE 2 TABLETS BY MOUTH DAILY
     Route: 048
     Dates: start: 20191017
  38. ANTARA [Concomitant]
     Active Substance: FENOFIBRATE
     Indication: HYPERTRIGLYCERIDAEMIA
     Dosage: TAKE 1 CAPSULE BY MOUTH EVERY MORNING (BEFORE BREAKFAST)
     Route: 048
     Dates: start: 20191021
  39. ENULOSE [Concomitant]
     Active Substance: LACTULOSE
     Indication: CONSTIPATION
     Dosage: 10 GRAM/15 ML
     Route: 048
  40. ZOFRAN-ODT [Concomitant]
     Indication: VOMITING
     Dosage: TAKE 1 TABLET BY MOUTH EVERY 6 HR AS NEEDED DISSOLVE ON TOP OF THE TONGUE
     Route: 048
     Dates: start: 20190820, end: 20190830
  41. BACTRIM [Concomitant]
     Active Substance: SULFAMETHOXAZOLE\TRIMETHOPRIM
     Indication: ANTIFUNGAL PROPHYLAXIS
     Dosage: 400-80-MG TAKE 1 TABLET BY MOUTH DAILY
     Route: 048
  42. ZINC OXIDE. [Concomitant]
     Active Substance: ZINC OXIDE
     Indication: SKIN IRRITATION
     Dosage: 20% APPLY TOPICALLY AS NEEDED
     Route: 061
     Dates: start: 20191011
  43. FRAGMIN [Concomitant]
     Active Substance: DALTEPARIN SODIUM
     Indication: PRODUCT USED FOR UNKNOWN INDICATION
     Dosage: 0.2 ML=5000 UNITS OF 5000 UNITS/0.2 ML DAILY WITH LUNCH
     Route: 058
     Dates: start: 20191005, end: 20191010

REACTIONS (4)
  - Bacterial infection [Recovered/Resolved]
  - Gait disturbance [Not Recovered/Not Resolved]
  - Off label use [Unknown]
  - Clostridium difficile infection [Recovered/Resolved]

NARRATIVE: CASE EVENT DATE: 2019
